FAERS Safety Report 17933211 (Version 1)
Quarter: 2020Q2

REPORT INFORMATION
  Report Type: Spontaneous
  Country: PT (occurrence: PT)
  Receive Date: 20200623
  Receipt Date: 20200623
  Transmission Date: 20200714
  Serious: Yes (Life-Threatening)
  Sender: FDA-Public Use
  Company Number: NVSC2020PT176427

PATIENT
  Age: 4 Year
  Sex: Male

DRUGS (7)
  1. METHYLPREDNISOLONE. [Suspect]
     Active Substance: METHYLPREDNISOLONE
     Indication: ARTHRITIS
     Dosage: 30 MG/KG, QD
     Route: 065
  2. PREDNISOLONE. [Suspect]
     Active Substance: PREDNISOLONE
     Dosage: 2 MG/KG, QD
     Route: 065
  3. METHOTREXATE. [Suspect]
     Active Substance: METHOTREXATE
     Indication: ARTHRITIS
     Dosage: 15 MG/M2, QW MAINTAINING
     Route: 048
     Dates: start: 201204
  4. PREDNISOLONE. [Suspect]
     Active Substance: PREDNISOLONE
     Indication: ARTHRITIS
     Dosage: DEC-2012 RESTARTED PDN 0.3 MG/KG/DAY, MAINTAINED THE PDN 1 MG / KG / DAY SUSPEND 1.5 MONTHS LATER
     Route: 065
     Dates: start: 201204
  5. IBUPROFEN. [Suspect]
     Active Substance: IBUPROFEN
     Indication: ARTHRITIS
     Dosage: 40 MG/KG, QD
     Route: 065
  6. FLUCLOXACILLIN [Suspect]
     Active Substance: FLUCLOXACILLIN
     Indication: ARTHRITIS
     Dosage: 500 MG, Q6H
     Route: 065
  7. ANAKINRA [Suspect]
     Active Substance: ANAKINRA
     Indication: ARTHRITIS
     Dosage: 2 MG/KG, QD
     Route: 065

REACTIONS (1)
  - Cardiac tamponade [Unknown]
